FAERS Safety Report 15014333 (Version 1)
Quarter: 2018Q2

REPORT INFORMATION
  Report Type: Spontaneous
  Country: HR (occurrence: HR)
  Receive Date: 20180615
  Receipt Date: 20180615
  Transmission Date: 20180711
  Serious: Yes (Hospitalization, Other)
  Sender: FDA-Public Use
  Company Number: HR-BRISTOL-MYERS SQUIBB COMPANY-BMS-2018-052161

PATIENT
  Sex: Male

DRUGS (1)
  1. LITALIR [Suspect]
     Active Substance: HYDROXYUREA
     Indication: PRODUCT USED FOR UNKNOWN INDICATION
     Dosage: 25 G, QD
     Route: 048
     Dates: start: 20180202, end: 20180202

REACTIONS (3)
  - Chronic obstructive pulmonary disease [Unknown]
  - Suicide attempt [Unknown]
  - Intentional overdose [Unknown]

NARRATIVE: CASE EVENT DATE: 20180203
